FAERS Safety Report 7201558-X (Version None)
Quarter: 2010Q4

REPORT INFORMATION
  Report Type: 
  Country: None (occurrence: None)
  Receive Date: 20101229
  Receipt Date: 20101217
  Transmission Date: 20110411
  Serious: Yes (Hospitalization)
  Sender: FDA-Public Use
  Company Number: FR-PFIZER INC-2010174361

PATIENT
  Age: 62 Year
  Sex: Female

DRUGS (6)
  1. EFFEXOR XR [Suspect]
     Dosage: 2 DF, 1X/DAY
     Route: 048
     Dates: start: 20100501, end: 20101029
  2. NEXIUM [Suspect]
     Dosage: 40 MG, 1X/DAY
     Route: 048
     Dates: end: 20101112
  3. MEPRONIZINE [Suspect]
     Dosage: 2 DF, 1X/DAY
     Route: 048
     Dates: end: 20101112
  4. TETRAZEPAM [Concomitant]
     Dosage: 1 DF, 1X/DAY
     Route: 048
     Dates: end: 20101112
  5. SPASFON [Concomitant]
     Dosage: 2 DF, 1X/DAY
     Route: 048
     Dates: end: 20101112
  6. BROMAZEPAM [Concomitant]
     Dosage: UNK
     Dates: end: 20101029

REACTIONS (5)
  - CONVULSION [None]
  - FALL [None]
  - HEAD INJURY [None]
  - HYPONATRAEMIA [None]
  - MALAISE [None]
